FAERS Safety Report 26074561 (Version 1)
Quarter: 2025Q4

REPORT INFORMATION
  Report Type: Report from Study
  Country: US (occurrence: US)
  Receive Date: 20251121
  Receipt Date: 20251121
  Transmission Date: 20260117
  Serious: Yes (Hospitalization)
  Sender: RECORDATI
  Company Number: US-RECORDATI-2025008139

PATIENT
  Age: 17 Year
  Sex: Male
  Weight: 41.27 kg

DRUGS (10)
  1. CYSTADANE [Suspect]
     Active Substance: BETAINE
     Indication: Homocystinuria
     Dosage: 4 GRAM, QID
     Route: 048
     Dates: start: 20190821
  2. CYSTADANE [Suspect]
     Active Substance: BETAINE
     Dosage: 4 GRAM, QID (ORAL POWDER)
     Route: 048
     Dates: start: 20250122
  3. ABILIFY [Concomitant]
     Active Substance: ARIPIPRAZOLE
     Indication: Product used for unknown indication
     Dosage: 15 MG, QD (TABLET 15 MG)
     Route: 048
     Dates: start: 20241230
  4. PYRIDOXINE HYDROCHLORIDE [Concomitant]
     Active Substance: PYRIDOXINE HYDROCHLORIDE
     Indication: Product used for unknown indication
     Dosage: 100 MG, EVERY DAY
     Route: 048
     Dates: start: 20090101
  5. FOCALIN XR [Concomitant]
     Active Substance: DEXMETHYLPHENIDATE HYDROCHLORIDE
     Indication: Product used for unknown indication
     Dosage: 35 MG, DAILY (CAPSULE ER)
     Route: 048
     Dates: start: 20220819
  6. FOLIC ACID [Concomitant]
     Active Substance: FOLIC ACID
     Indication: Product used for unknown indication
     Dosage: 400 MCG, EVERY DAY
     Route: 048
     Dates: start: 20090101
  7. GUANFACINE HYDROCHLORIDE [Concomitant]
     Active Substance: GUANFACINE HYDROCHLORIDE
     Indication: Product used for unknown indication
     Dosage: 1 MG, BID (TABLET 1 MG)
     Route: 048
     Dates: start: 20220104
  8. LAMICTAL [Concomitant]
     Active Substance: LAMOTRIGINE
     Indication: Product used for unknown indication
     Dosage: 25 MG, BID
     Route: 048
     Dates: start: 20120701
  9. SENNOSIDES [Concomitant]
     Active Substance: SENNOSIDES
     Indication: Product used for unknown indication
     Dosage: 8.6 MG, QD AT BEDTIME (TABLET 8.6 MG)
     Route: 048
     Dates: start: 20230602
  10. VALPROIC ACID [Concomitant]
     Active Substance: VALPROIC ACID
     Indication: Product used for unknown indication
     Dosage: 750 MG, BID (SOLUTION 250 MG)
     Route: 048
     Dates: start: 20230602

REACTIONS (3)
  - Cerebral haemorrhage [Not Recovered/Not Resolved]
  - Constipation [Not Recovered/Not Resolved]
  - Dehydration [Not Recovered/Not Resolved]

NARRATIVE: CASE EVENT DATE: 20251023
